FAERS Safety Report 11300930 (Version 1)
Quarter: 2015Q3

REPORT INFORMATION
  Report Type: Spontaneous
  Country: US (occurrence: US)
  Receive Date: 20150722
  Receipt Date: 20150722
  Transmission Date: 20151125
  Serious: No
  Sender: FDA-Public Use
  Company Number: US-ELI_LILLY_AND_COMPANY-US201202000625

PATIENT
  Sex: Female

DRUGS (1)
  1. HUMATROPE [Suspect]
     Active Substance: SOMATROPIN
     Dosage: 0.3 MG, UNK
     Route: 058
     Dates: start: 2007

REACTIONS (6)
  - Fatigue [Unknown]
  - Drug dose omission [Not Recovered/Not Resolved]
  - Arthralgia [Unknown]
  - Disturbance in attention [Unknown]
  - Coordination abnormal [Unknown]
  - Myalgia [Unknown]
